FAERS Safety Report 7312819-8 (Version None)
Quarter: 2011Q1

REPORT INFORMATION
  Report Type: 
  Country: None (occurrence: None)
  Receive Date: 20110224
  Receipt Date: 20100323
  Transmission Date: 20110831
  Serious: No
  Sender: FDA-Public Use
  Company Number: US-MYLANLABS-2010S1005069

PATIENT
  Sex: Female

DRUGS (2)
  1. LEVOTHYROXINE SODIUM [Concomitant]
  2. METOPROLOL TARTRATE [Suspect]
     Indication: ANGINA PECTORIS
     Route: 048
     Dates: start: 20060101

REACTIONS (2)
  - NOCTURIA [None]
  - PRURITUS [None]
